FAERS Safety Report 5226516-6 (Version None)
Quarter: 2006Q4

REPORT INFORMATION
  Report Type: 
  Country: None (occurrence: None)
  Receive Date: 20061201
  Receipt Date: 20061019
  Transmission Date: 20070319
  Serious: No
  Sender: FDA-Public Use
  Company Number: US200610003783

PATIENT
  Age: 66 Year
  Sex: Male

DRUGS (3)
  1. CYMBALTA [Suspect]
     Indication: NEURALGIA
     Dosage: 30 MG
     Dates: start: 20060101, end: 20060101
  2. CYMBALTA [Suspect]
     Indication: NEURALGIA
     Dosage: 30 MG
     Dates: start: 20060101, end: 20060101
  3. DYAZIDE / CAN / (HYDROCHLOROTHIAZIDE, TRIAMTERENE) [Concomitant]

REACTIONS (2)
  - NAUSEA [None]
  - RETCHING [None]
